FAERS Safety Report 10220545 (Version 1)
Quarter: 2014Q2

REPORT INFORMATION
  Report Type: Spontaneous
  Country: FR (occurrence: None)
  Receive Date: 20140604
  Receipt Date: 20140604
  Transmission Date: 20141212
  Serious: Yes (Hospitalization)
  Sender: FDA-Public Use
  Company Number: FK201402090

PATIENT
  Age: 77 Year
  Sex: Male

DRUGS (4)
  1. IRINOTECAN 20 MG/ML CONCENTRATE FOR SOLUTION FOR INFUSION (IRINOTECAN HYDROCHLORIDE TRI HYDRATE) (IRINOTECAN HYDROCHLORIDE TRIHYDRATE) [Suspect]
     Indication: PRODUCT USED FOR UNKNOWN INDICATION
     Dates: start: 20140318, end: 20140401
  2. AVASTIN (BEVACIZUMAB) (BEVACIZUMAB) [Suspect]
     Indication: PRODUCT USED FOR UNKNOWN INDICATION
     Dates: start: 20140318, end: 20140401
  3. FLUOROURACIL ROCHE (FLUOROURACIL) (FLUOROURACIL) [Suspect]
     Indication: PRODUCT USED FOR UNKNOWN INDICATION
     Dates: start: 20140318, end: 20140401
  4. ARANESP (DARBEPOETIN ALFA) (DARBEPOETIN ALFA) [Suspect]
     Indication: PRODUCT USED FOR UNKNOWN INDICATION
     Dates: start: 20140318, end: 20140401

REACTIONS (1)
  - Peripheral ischaemia [None]
